FAERS Safety Report 25749983 (Version 1)
Quarter: 2025Q3

REPORT INFORMATION
  Report Type: Spontaneous
  Country: US (occurrence: US)
  Receive Date: 20250902
  Receipt Date: 20250902
  Transmission Date: 20251020
  Serious: No
  Sender: STALLERGENES
  Company Number: US-STALCOR-2025-AER-02301

PATIENT
  Age: 10 Year
  Sex: Male

DRUGS (1)
  1. PALFORZIA [Suspect]
     Active Substance: PEANUT
     Indication: Food allergy
     Dosage: 4X20MG: DISPENSED ON 25-JUN-2025
     Route: 048

REACTIONS (2)
  - Drug intolerance [Recovered/Resolved]
  - Therapy cessation [Recovered/Resolved]
